FAERS Safety Report 4318040-X (Version None)
Quarter: 2004Q1

REPORT INFORMATION
  Report Type: 
  Country: None (occurrence: None)
  Receive Date: 20040317
  Receipt Date: 20040220
  Transmission Date: 20041129
  Serious: Yes (Other)
  Sender: FDA-Public Use
  Company Number: 200411387US

PATIENT
  Age: 91 Year
  Sex: Female

DRUGS (1)
  1. LOVENOX [Suspect]
     Dates: start: 20040123, end: 20040220

REACTIONS (2)
  - RASH ERYTHEMATOUS [None]
  - SKIN NECROSIS [None]
